FAERS Safety Report 15456298 (Version 1)
Quarter: 2018Q3

REPORT INFORMATION
  Report Type: Spontaneous
  Country: US (occurrence: US)
  Receive Date: 20180928
  Receipt Date: 20180928
  Transmission Date: 20181010
  Serious: Yes (Disabling, Other)
  Sender: FDA-Public Use
  Company Number: None

PATIENT
  Age: 43 Year
  Sex: Female
  Weight: 85.5 kg

DRUGS (3)
  1. XEOMIN [Suspect]
     Active Substance: INCOBOTULINUMTOXINA
  2. DYSPORT [Suspect]
     Active Substance: ABOBOTULINUMTOXINA
  3. BOTOX [Suspect]
     Active Substance: ONABOTULINUMTOXINA
     Indication: SKIN WRINKLING
     Dosage: ?          OTHER FREQUENCY:1 OR 2 X^S YEARLY;?
     Route: 058
     Dates: start: 20100101, end: 20170221

REACTIONS (23)
  - Chills [None]
  - Trigeminal neuralgia [None]
  - Dysphagia [None]
  - Cognitive disorder [None]
  - Insomnia [None]
  - Diarrhoea [None]
  - Speech disorder [None]
  - Spinal pain [None]
  - Weight decreased [None]
  - Neuralgia [None]
  - Suicidal ideation [None]
  - Muscle spasms [None]
  - Bladder disorder [None]
  - Dyspnoea [None]
  - Unevaluable event [None]
  - Anxiety [None]
  - Palpitations [None]
  - Drug intolerance [None]
  - Food intolerance [None]
  - Alopecia [None]
  - Dental caries [None]
  - Bone pain [None]
  - Product quality issue [None]

NARRATIVE: CASE EVENT DATE: 20170221
